FAERS Safety Report 8480372-1 (Version None)
Quarter: 2012Q3

REPORT INFORMATION
  Report Type: 
  Country: None (occurrence: None)
  Receive Date: 20120702
  Receipt Date: 20120625
  Transmission Date: 20120928
  Serious: Yes (Death, Hospitalization)
  Sender: FDA-Public Use
  Company Number: TH-ROCHE-1079059

PATIENT
  Sex: Female
  Weight: 30 kg

DRUGS (2)
  1. METHOTREXATE [Concomitant]
  2. ACTEMRA [Suspect]
     Indication: JUVENILE ARTHRITIS
     Route: 042

REACTIONS (3)
  - INFECTION [None]
  - SEPSIS [None]
  - HISTIOCYTOSIS HAEMATOPHAGIC [None]
